FAERS Safety Report 20832018 (Version 1)
Quarter: 2022Q2

REPORT INFORMATION
  Report Type: 
  Country: None (occurrence: None)
  Receive Date: 20220516
  Receipt Date: 20220516
  Transmission Date: 20220721
  Serious: No
  Sender: FDA-Public Use
  Company Number: CA-ROCHE-2206699

PATIENT
  Age: 42 Year

DRUGS (1)
  1. OCREVUS [Suspect]
     Active Substance: OCRELIZUMAB
     Dosage: 1.00 X 300 MG DAY 1, 15 THEN Q6M.
     Dates: start: 20171025

REACTIONS (2)
  - Nasopharyngitis [None]
  - Cough [None]

NARRATIVE: CASE EVENT DATE: 20181017
